FAERS Safety Report 12638830 (Version 1)
Quarter: 2016Q3

REPORT INFORMATION
  Report Type: Spontaneous
  Country: US (occurrence: US)
  Receive Date: 20160809
  Receipt Date: 20160809
  Transmission Date: 20161109
  Serious: No
  Sender: FDA-Public Use
  Company Number: US-ASTRAZENECA-2016SE52483

PATIENT
  Age: 24948 Day
  Sex: Female
  Weight: 67.1 kg

DRUGS (2)
  1. METOPROLOL. [Suspect]
     Active Substance: METOPROLOL
     Indication: HYPERTENSION
     Route: 048
  2. BYDUREON [Suspect]
     Active Substance: EXENATIDE
     Indication: TYPE 2 DIABETES MELLITUS
     Route: 058
     Dates: start: 201603

REACTIONS (9)
  - Hypoglycaemia [Recovering/Resolving]
  - Injection site nodule [Unknown]
  - Hypotension [Unknown]
  - Injection site pain [Unknown]
  - Weight decreased [Unknown]
  - Injection site pruritus [Recovering/Resolving]
  - Type 2 diabetes mellitus [Recovering/Resolving]
  - Injection site bruising [Recovering/Resolving]
  - Injection site hyperaesthesia [Unknown]

NARRATIVE: CASE EVENT DATE: 20160327
